FAERS Safety Report 14687767 (Version 1)
Quarter: 2018Q1

REPORT INFORMATION
  Report Type: Report from Study
  Country: US (occurrence: US)
  Receive Date: 20180328
  Receipt Date: 20180328
  Transmission Date: 20180509
  Serious: Yes (Other)
  Sender: FDA-Public Use
  Company Number: US-ROCHE-2094271

PATIENT
  Age: 65 Year
  Sex: Female

DRUGS (3)
  1. BENADRYL [Concomitant]
     Active Substance: DIPHENHYDRAMINE HYDROCHLORIDE
     Indication: ANAPHYLACTIC SHOCK
     Dosage: ONGOING: UNKNOWN
     Route: 048
     Dates: start: 20180314
  2. PREDNISONE. [Concomitant]
     Active Substance: PREDNISONE
     Indication: ASTHMA
     Dosage: ONGOING: UNKNOWN
     Route: 048
     Dates: start: 20180315
  3. XOLAIR [Suspect]
     Active Substance: OMALIZUMAB
     Indication: ASTHMA
     Dosage: SHE HAS RECEIVED 2 DOSES OF XOLAIR;ONGOING:UNKNOWN
     Route: 065

REACTIONS (2)
  - Tremor [Not Recovered/Not Resolved]
  - Anaphylactic reaction [Not Recovered/Not Resolved]

NARRATIVE: CASE EVENT DATE: 20180314
